FAERS Safety Report 6013502-1 (Version None)
Quarter: 2008Q4

REPORT INFORMATION
  Report Type: 
  Country: None (occurrence: None)
  Receive Date: 20081219
  Receipt Date: 20081209
  Transmission Date: 20090506
  Serious: Yes (Other)
  Sender: FDA-Public Use
  Company Number: PHHY2008JP28604

PATIENT
  Age: 64 Year
  Sex: Male

DRUGS (4)
  1. RESCULA [Suspect]
     Indication: OPEN ANGLE GLAUCOMA
     Dosage: 2 DROPS
     Dates: start: 20080323, end: 20080724
  2. RESCULA [Suspect]
     Dosage: 2 DROPS
     Dates: start: 20080813, end: 20080924
  3. BETOPTIC [Suspect]
     Indication: OPEN ANGLE GLAUCOMA
     Dosage: 2 DROPS
     Dates: start: 20080323, end: 20080724
  4. BETOPTIC [Suspect]
     Dosage: 2 DROPS
     Dates: start: 20080806

REACTIONS (6)
  - ABNORMAL SENSATION IN EYE [None]
  - CORNEAL DISORDER [None]
  - EYE IRRITATION [None]
  - FOREIGN BODY SENSATION IN EYES [None]
  - HYPERAEMIA [None]
  - KERATITIS HERPETIC [None]
